FAERS Safety Report 10035011 (Version 2)
Quarter: 2014Q2

REPORT INFORMATION
  Report Type: Spontaneous
  Country: BR (occurrence: BR)
  Receive Date: 20140325
  Receipt Date: 20140425
  Transmission Date: 20141212
  Serious: Yes (Other)
  Sender: FDA-Public Use
  Company Number: BR-SA-2014SA032457

PATIENT
  Age: 52 Year
  Sex: Male
  Weight: 111 kg

DRUGS (16)
  1. LANTUS [Suspect]
     Indication: TYPE 1 DIABETES MELLITUS
     Dosage: STARTED APPROX 4 YEARS AGO
     Route: 058
     Dates: start: 2010
  2. RIVOTRIL [Concomitant]
     Indication: SEDATION
     Route: 048
  3. DAFLON [Concomitant]
     Indication: CARDIOVASCULAR DISORDER
     Route: 048
  4. SPIRIVA [Concomitant]
     Indication: CHRONIC OBSTRUCTIVE PULMONARY DISEASE
     Dosage: 2 PUMPS A DAY
     Route: 048
  5. SIMVASTATIN [Concomitant]
     Indication: BLOOD CHOLESTEROL
     Route: 048
  6. ASS [Concomitant]
     Indication: ANTIPLATELET THERAPY
     Route: 048
  7. CLOPIDOGREL [Concomitant]
     Indication: ANTIPLATELET THERAPY
     Route: 048
  8. LASIX [Concomitant]
     Indication: POLYURIA
     Route: 048
  9. MAREVAN [Concomitant]
     Indication: ANTIPLATELET THERAPY
     Route: 048
  10. ANCORON [Concomitant]
     Indication: CARDIAC DISORDER
     Route: 048
  11. ANCORON [Concomitant]
     Indication: ARRHYTHMIA
     Route: 048
  12. NEBILET [Concomitant]
     Indication: CARDIAC DISORDER
     Route: 048
  13. THIOCTACID [Concomitant]
     Indication: DIABETIC NEUROPATHY
     Route: 048
  14. METFORMIN [Concomitant]
     Indication: TYPE 1 DIABETES MELLITUS
     Route: 048
  15. GALVUS MET [Concomitant]
     Indication: TYPE 1 DIABETES MELLITUS
     Route: 048
  16. NOVORAPID [Concomitant]
     Indication: TYPE 1 DIABETES MELLITUS
     Dosage: 60 IU^S DAILY (20 IU^S AFTER MAIN MEALS)
     Route: 058

REACTIONS (5)
  - Cardiac operation [Recovered/Resolved]
  - Dyspnoea [Recovered/Resolved]
  - Pulmonary haemorrhage [Recovered/Resolved]
  - Injection site pain [Recovered/Resolved]
  - Arrhythmia [Unknown]
